FAERS Safety Report 18943121 (Version 1)
Quarter: 2021Q1

REPORT INFORMATION
  Report Type: Spontaneous
  Country: US (occurrence: US)
  Receive Date: 20210226
  Receipt Date: 20210226
  Transmission Date: 20210420
  Serious: No
  Sender: FDA-Public Use
  Company Number: US-CIPLA LTD.-2020US09538

PATIENT

DRUGS (1)
  1. DICLOFENAC [Suspect]
     Active Substance: DICLOFENAC
     Indication: BACK DISORDER
     Dosage: 2 GRAM, QID (4 TIMES A DAY)
     Route: 065
     Dates: start: 202012

REACTIONS (2)
  - Off label use [Unknown]
  - Product packaging issue [Unknown]

NARRATIVE: CASE EVENT DATE: 202012
